FAERS Safety Report 6038927-X (Version None)
Quarter: 2009Q1

REPORT INFORMATION
  Report Type: 
  Country: None (occurrence: None)
  Receive Date: 20090114
  Receipt Date: 20090114
  Transmission Date: 20090719
  Serious: No
  Sender: FDA-Public Use
  Company Number: None

PATIENT
  Age: 69 Year
  Sex: Female
  Weight: 72.5755 kg

DRUGS (1)
  1. TRAVATAN Z [Suspect]
     Indication: GLAUCOMA
     Dosage: 1 DROP IN EACH EYE BEDTIME OPHTHALMIC MORE THAN 1 YEAR
     Route: 047
     Dates: start: 20080411, end: 20081209

REACTIONS (1)
  - TOOTH DISCOLOURATION [None]
